FAERS Safety Report 7354681-3 (Version None)
Quarter: 2011Q1

REPORT INFORMATION
  Report Type: 
  Country: None (occurrence: None)
  Receive Date: 20110316
  Receipt Date: 20110309
  Transmission Date: 20110831
  Serious: Yes (Other)
  Sender: FDA-Public Use
  Company Number: US-PFIZER INC-2011023787

PATIENT
  Sex: Female

DRUGS (2)
  1. GEODON [Suspect]
     Indication: PSYCHOTIC DISORDER
     Dosage: 60 MG, 2X/DAY
     Route: 048
     Dates: start: 20101207, end: 20110104
  2. LITHIUM CARBONATE [Concomitant]
     Dosage: 450 MG, 2X/DAY

REACTIONS (4)
  - RASH [None]
  - VOMITING [None]
  - PRURITUS [None]
  - PHARYNGEAL INFLAMMATION [None]
